FAERS Safety Report 6456425-6 (Version None)
Quarter: 2009Q4

REPORT INFORMATION
  Report Type: 
  Country: None (occurrence: None)
  Receive Date: 20091125
  Receipt Date: 20091118
  Transmission Date: 20100525
  Serious: Yes (Other)
  Sender: FDA-Public Use
  Company Number: PHEH2009US16275

PATIENT
  Sex: Male

DRUGS (2)
  1. RITALIN [Suspect]
  2. DEXTROAMPHETAMINE [Suspect]
     Indication: ATTENTION DEFICIT/HYPERACTIVITY DISORDER
     Dosage: 20 MG

REACTIONS (8)
  - DISTURBANCE IN ATTENTION [None]
  - DRUG INEFFECTIVE [None]
  - DYSARTHRIA [None]
  - DYSPHEMIA [None]
  - HYPERHIDROSIS [None]
  - POVERTY OF SPEECH [None]
  - PRESSURE OF SPEECH [None]
  - TACHYPHRENIA [None]
